FAERS Safety Report 9027218 (Version 1)
Quarter: 2013Q1

REPORT INFORMATION
  Report Type: Spontaneous
  Country: US (occurrence: US)
  Receive Date: 20130123
  Receipt Date: 20130123
  Transmission Date: 20140127
  Serious: Yes (Hospitalization, Other)
  Sender: FDA-Public Use
  Company Number: US-UCBSA-075577

PATIENT
  Age: 22 Year
  Sex: Female

DRUGS (4)
  1. KEPPRA [Suspect]
     Indication: EPILEPSY
     Dosage: UNKNOWN DOSE ; TAKING FOR 5+ YEARS
  2. CLONAZEPAM [Concomitant]
     Dosage: UNKNOWN DOSE; TAKING FOR 5+ YEARS
  3. DEPAKOTE [Concomitant]
     Indication: EPILEPSY
     Dosage: UNKNOWN DOSE
  4. LAMICTAL [Concomitant]
     Indication: EPILEPSY
     Dosage: UNKNOWN DOSE; TAKING FOR 5+ YEARS

REACTIONS (2)
  - Convulsion [Unknown]
  - Face injury [Unknown]
